FAERS Safety Report 11748150 (Version 2)
Quarter: 2015Q4

REPORT INFORMATION
  Report Type: Spontaneous
  Country: JP (occurrence: JP)
  Receive Date: 20151117
  Receipt Date: 20151201
  Transmission Date: 20160304
  Serious: Yes (Death)
  Sender: FDA-Public Use
  Company Number: JP-CELGENE-JPN-2015114434

PATIENT
  Age: 71 Year
  Sex: Male
  Weight: 57 kg

DRUGS (7)
  1. NON-PYRINE COLD PREPARATION [Suspect]
     Active Substance: UNSPECIFIED INGREDIENT
     Indication: NASOPHARYNGITIS
     Dosage: 10 MILLIGRAM
     Route: 048
     Dates: start: 20151016, end: 20151018
  2. OXYCODONE [Concomitant]
     Active Substance: OXYCODONE
     Indication: CANCER PAIN
     Route: 048
     Dates: start: 20150528, end: 20151018
  3. ABRAXANE [Suspect]
     Active Substance: PACLITAXEL
     Indication: METASTATIC GASTRIC CANCER
     Dosage: 330 MILLIGRAM
     Route: 041
     Dates: start: 20150525, end: 20151016
  4. PARIET [Concomitant]
     Active Substance: RABEPRAZOLE SODIUM
     Indication: GASTRITIS
     Route: 048
     Dates: start: 20150316, end: 20151018
  5. ADONA [Concomitant]
     Active Substance: CARBAZOCHROME SODIUM SULFONATE
     Indication: RESPIRATORY TRACT HAEMORRHAGE
     Dosage: 20 MILLIGRAM
     Route: 048
     Dates: start: 20150227, end: 20151018
  6. LEVOFLOXACIN HEMIHYDRATE [Concomitant]
     Active Substance: LEVOFLOXACIN
     Indication: CHOLANGITIS
     Dosage: 180 MILLIGRAM
     Route: 048
     Dates: start: 20150925, end: 20151018
  7. LOXOPROFEN SODIUM HYDRATE [Concomitant]
     Active Substance: LOXOPROFEN SODIUM DIHYDRATE
     Indication: CANCER PAIN
     Route: 048
     Dates: start: 20150528, end: 20151018

REACTIONS (3)
  - Pneumonia [Fatal]
  - Sepsis [Fatal]
  - Metastatic gastric cancer [Fatal]

NARRATIVE: CASE EVENT DATE: 20151018
